FAERS Safety Report 4404188-8 (Version None)
Quarter: 2004Q3

REPORT INFORMATION
  Report Type: 
  Country: None (occurrence: None)
  Receive Date: 20040719
  Receipt Date: 20040707
  Transmission Date: 20050211
  Serious: Yes (Hospitalization)
  Sender: FDA-Public Use
  Company Number: 24486 (1)

PATIENT
  Age: 77 Year
  Sex: Male

DRUGS (14)
  1. FLECAINIDE ACETATE [Suspect]
     Indication: ATRIAL FIBRILLATION
     Dosage: 100 MG
     Route: 048
     Dates: start: 20010723, end: 20010820
  2. FLECAINIDE ACETATE [Suspect]
     Dosage: 100 MG
     Route: 048
     Dates: start: 20010820, end: 20011105
  3. EVIPROSTAT [Concomitant]
  4. THEOLONG (THEOPHYLLINE) [Concomitant]
  5. BAYASPIRIN (ASPIRIN) [Concomitant]
  6. ANPLAG (SARPOGRELATE HYDROCHLORIDE) [Concomitant]
  7. SELBEX (TEPRENONE) [Concomitant]
  8. AVISHOT (NAFTOPIDIL) [Concomitant]
  9. ALLOPURINOL [Concomitant]
  10. SERENAL (OXAZOLAM) [Concomitant]
  11. GLYCERIN AND PREPARATIONS [Concomitant]
  12. VITAMIN C (ASCORBIC ACID) [Concomitant]
  13. VITAMEDIN (VITAMIN B COMPLEX) [Concomitant]
  14. PROCATEROL HCL [Concomitant]

REACTIONS (19)
  - ALANINE AMINOTRANSFERASE INCREASED [None]
  - ASPARTATE AMINOTRANSFERASE INCREASED [None]
  - ATRIAL FIBRILLATION [None]
  - BLOOD ALKALINE PHOSPHATASE INCREASED [None]
  - BLOOD LACTATE DEHYDROGENASE INCREASED [None]
  - CONSTIPATION [None]
  - DRUG ERUPTION [None]
  - FALL [None]
  - GAMMA-GLUTAMYLTRANSFERASE INCREASED [None]
  - MONOCYTE COUNT INCREASED [None]
  - PARKINSONIAN GAIT [None]
  - PNEUMONIA BACTERIAL [None]
  - RADIUS FRACTURE [None]
  - SKULL FRACTURE [None]
  - TACHYCARDIA [None]
  - THROMBOCYTHAEMIA [None]
  - TRANSIENT ISCHAEMIC ATTACK [None]
  - UROBILIN URINE PRESENT [None]
  - WHITE BLOOD CELL COUNT INCREASED [None]
